FAERS Safety Report 9954173 (Version 2)
Quarter: 2014Q1

REPORT INFORMATION
  Report Type: Report from Study
  Country: US (occurrence: US)
  Receive Date: 20140304
  Receipt Date: 20140304
  Transmission Date: 20141002
  Serious: No
  Sender: FDA-Public Use
  Company Number: US-ABBVIE-13P-163-1059934-00

PATIENT
  Age: 55 Year
  Sex: Male

DRUGS (9)
  1. HUMIRA [Suspect]
     Indication: PSORIATIC ARTHROPATHY
     Route: 058
     Dates: start: 20121125
  2. METFORMIN [Concomitant]
     Indication: DIABETES MELLITUS
     Route: 048
  3. DALIRESP [Concomitant]
     Indication: CHRONIC OBSTRUCTIVE PULMONARY DISEASE
     Route: 048
  4. LISINOPRIL [Concomitant]
     Indication: HYPERTENSION
     Route: 048
  5. ATENOLOL [Concomitant]
     Indication: HYPERTENSION
     Route: 048
  6. CLARITIN [Concomitant]
     Indication: HYPERSENSITIVITY
     Route: 048
  7. IBUPROFEN [Concomitant]
     Indication: PAIN
     Route: 048
  8. LORTAB [Concomitant]
     Indication: BREAKTHROUGH PAIN
     Dosage: 10/325---NOT TAKEN OFTEN
     Route: 048
  9. ALBUTEROL [Concomitant]
     Indication: DYSPNOEA
     Dosage: 1 EVERY 4 HOURS AS NEEDED

REACTIONS (1)
  - Pruritus [Not Recovered/Not Resolved]
